FAERS Safety Report 9846825 (Version 2)
Quarter: 2014Q1

REPORT INFORMATION
  Report Type: Report from Study
  Country: US (occurrence: US)
  Receive Date: 20140127
  Receipt Date: 20140127
  Transmission Date: 20141002
  Serious: Yes (Hospitalization, Other)
  Sender: FDA-Public Use
  Company Number: US-ABBVIE-13P-163-1132677-00

PATIENT
  Age: 48 Year
  Sex: Female
  Weight: 56.75 kg

DRUGS (7)
  1. HUMIRA [Suspect]
     Indication: RHEUMATOID ARTHRITIS
     Dates: start: 2005, end: 2007
  2. HUMIRA [Suspect]
     Dates: start: 2013
  3. PREDNISONE [Concomitant]
     Indication: RHEUMATOID ARTHRITIS
  4. MELOXICAM [Concomitant]
     Indication: COLITIS ULCERATIVE
  5. TRAMADOL [Concomitant]
     Indication: PAIN
  6. UNKNOWN ANTIDIARRHEAL [Concomitant]
     Indication: COLITIS ULCERATIVE
  7. XANAX [Concomitant]
     Indication: ANXIETY

REACTIONS (6)
  - Precancerous cells present [Recovered/Resolved]
  - Colon cancer [Recovered/Resolved]
  - Diarrhoea [Recovered/Resolved]
  - Rheumatoid arthritis [Not Recovered/Not Resolved]
  - Local swelling [Not Recovered/Not Resolved]
  - Joint swelling [Not Recovered/Not Resolved]
